FAERS Safety Report 5957123-5 (Version None)
Quarter: 2008Q4

REPORT INFORMATION
  Report Type: 
  Country: None (occurrence: None)
  Receive Date: 20081106
  Receipt Date: 20080616
  Transmission Date: 20090506
  Serious: Yes (Hospitalization, Other)
  Sender: FDA-Public Use
  Company Number: US200806003809

PATIENT
  Age: 14 Year
  Sex: Male
  Weight: 49.9 kg

DRUGS (3)
  1. PROZAC [Suspect]
     Indication: DEPRESSION
     Dosage: (1/D), ORAL
     Route: 048
     Dates: start: 20060101, end: 20060101
  2. ADDERALL XR (AMFETAMINE ASPARTATE, AMFETAMINE SULFATE, DEXAMFETAMINE S [Concomitant]
  3. ABILIFY [Concomitant]

REACTIONS (3)
  - HOSTILITY [None]
  - PHYSICAL ASSAULT [None]
  - SUICIDAL IDEATION [None]
